FAERS Safety Report 6539783-3 (Version None)
Quarter: 2010Q1

REPORT INFORMATION
  Report Type: 
  Country: None (occurrence: None)
  Receive Date: 20100115
  Receipt Date: 20100104
  Transmission Date: 20100710
  Serious: Yes (Life-Threatening, Hospitalization)
  Sender: FDA-Public Use
  Company Number: TW-PFIZER INC-2009313340

PATIENT
  Age: 36 Year
  Sex: Female
  Weight: 50.8 kg

DRUGS (12)
  1. SUNITINIB MALATE [Suspect]
     Indication: HEPATIC NEOPLASM MALIGNANT NON-RESECTABLE
     Dosage: 37.5 MG, 1X/DAY
     Route: 048
     Dates: start: 20090430, end: 20091219
  2. UREA [Concomitant]
     Indication: PALMAR-PLANTAR ERYTHRODYSAESTHESIA SYNDROME
     Dosage: UNK
     Dates: start: 20090430
  3. PROHEPARUM [Concomitant]
     Indication: HEPATITIS B
     Dosage: 1 TAB, 3X/DAY
     Dates: start: 20090430, end: 20091219
  4. NORVASC [Concomitant]
     Indication: HYPERTENSION
     Dosage: 10 MG, 1X/DAY
     Dates: start: 20091016
  5. METOCLOPRAMIDE HYDROCHLORIDE [Concomitant]
     Indication: NAUSEA
     Dosage: 5 MG, 4X/DAY
     Dates: start: 20091030, end: 20091224
  6. METOCLOPRAMIDE HYDROCHLORIDE [Concomitant]
     Indication: VOMITING
  7. ALPRAZOLAM [Concomitant]
     Indication: ANXIETY
     Dosage: 0.25 MG, 4X/DAY
     Dates: start: 20091030, end: 20091219
  8. DEXTROMETHORPHAN HYDROBROMIDE [Concomitant]
     Indication: COUGH
     Dosage: 60 MG, 2X/DAY
     Dates: start: 20091120, end: 20091219
  9. AMBROXOL HYDROCHLORIDE [Concomitant]
     Indication: INFLUENZA LIKE ILLNESS
     Dosage: 30 MG, 2X/DAY
     Dates: start: 20091120, end: 20091219
  10. PROCHLORPERAZINE MALEATE [Concomitant]
     Indication: PROPHYLAXIS OF NAUSEA AND VOMITING
     Dosage: 5 MG, 4X/DAY
     Dates: start: 20091120, end: 20091219
  11. FUROSEMIDE [Concomitant]
     Indication: OEDEMA PERIPHERAL
     Dosage: 20 MG, 1X/DAY
     Dates: start: 20091120
  12. BUCLIZINE HYDROCHLORIDE [Concomitant]
     Indication: INFLUENZA LIKE ILLNESS
     Dosage: 25 MG, 2X/DAY
     Dates: start: 20091127, end: 20091219

REACTIONS (1)
  - HEPATIC FUNCTION ABNORMAL [None]
